FAERS Safety Report 16868980 (Version 1)
Quarter: 2019Q3

REPORT INFORMATION
  Report Type: Spontaneous
  Country: PL (occurrence: PL)
  Receive Date: 20190930
  Receipt Date: 20190930
  Transmission Date: 20191005
  Serious: Yes (Death, Hospitalization, Other)
  Sender: FDA-Public Use
  Company Number: PL-GLAXOSMITHKLINE-PL2019GSK147226

PATIENT
  Age: 46 Year

DRUGS (11)
  1. OLANZAPINE. [Interacting]
     Active Substance: OLANZAPINE
     Indication: BIPOLAR DISORDER
     Dosage: 10 MG / D
  2. CEFUROXIME AXETIL. [Suspect]
     Active Substance: CEFUROXIME AXETIL
     Indication: ANTIBIOTIC THERAPY
     Dosage: UNK
  3. CIPROFLOXACIN. [Interacting]
     Active Substance: CIPROFLOXACIN
     Indication: ANTIBIOTIC THERAPY
  4. AMOXICILLIN + CLAVULANIC ACID [Suspect]
     Active Substance: AMOXICILLIN\CLAVULANIC ACID
     Indication: BACTERIAL TEST POSITIVE
     Dosage: UNK
  5. LEVOFLOXACIN. [Suspect]
     Active Substance: LEVOFLOXACIN
     Indication: ANTIBIOTIC THERAPY
     Dosage: UNK
  6. ARIPIPRAZOLE. [Concomitant]
     Active Substance: ARIPIPRAZOLE
     Indication: BIPOLAR DISORDER
     Dosage: 7.5 MG / D
  7. TRIMETHOPRIM + SULFAMETHOXAZOL [Suspect]
     Active Substance: SULFAMERAZINE SODIUM\TRIMETHOPRIM
     Indication: ANTIBIOTIC THERAPY
     Dosage: UNK
  8. NIFUROXAZIDE [Suspect]
     Active Substance: NIFUROXAZIDE
     Indication: DIARRHOEA
     Dosage: UNK
  9. CIPROFLOXACIN. [Interacting]
     Active Substance: CIPROFLOXACIN
     Indication: BACTERIAL TEST POSITIVE
     Dosage: UNK
  10. ITOPRIDE [Interacting]
     Active Substance: ITOPRIDE
     Indication: GASTROOESOPHAGEAL REFLUX DISEASE
     Dosage: 50 MG 3 TIMES A DAY
     Route: 048
  11. PANTOPRAZOLE [Interacting]
     Active Substance: PANTOPRAZOLE
     Indication: GASTROOESOPHAGEAL REFLUX DISEASE
     Dosage: 40 MG / D

REACTIONS (19)
  - Intestinal perforation [Fatal]
  - Peritonitis [Fatal]
  - Trimethylaminuria [Fatal]
  - Oral discomfort [Unknown]
  - Condition aggravated [Unknown]
  - Pseudomembranous colitis [Unknown]
  - Bacterial test positive [Unknown]
  - White blood cells urine positive [Unknown]
  - Abdominal pain upper [Unknown]
  - Dysbiosis [Unknown]
  - Diarrhoea [Unknown]
  - Drug ineffective [Unknown]
  - Breath odour [Unknown]
  - Drug resistance [Unknown]
  - Urine odour abnormal [Unknown]
  - Pyrexia [Unknown]
  - Clostridium difficile infection [Unknown]
  - Megacolon [Unknown]
  - Inhibitory drug interaction [Unknown]
